FAERS Safety Report 7685617-3 (Version None)
Quarter: 2011Q3

REPORT INFORMATION
  Report Type: 
  Country: None (occurrence: None)
  Receive Date: 20110816
  Receipt Date: 20110802
  Transmission Date: 20111222
  Serious: Yes (Other)
  Sender: FDA-Public Use
  Company Number: PHEH2011US00604

PATIENT
  Sex: Female

DRUGS (5)
  1. METOPROLOL TARTRATE [Suspect]
     Dosage: UNK UKN, UNK
  2. CLONIDINE [Suspect]
  3. NORVASC [Suspect]
     Dosage: UNK UKN, UNK
  4. LISINOPRIL [Suspect]
     Dosage: UNK UKN, UNK
  5. PRENATAL VITAMINS [Concomitant]
     Dosage: UNK UKN, UNK

REACTIONS (4)
  - COUGH [None]
  - ALLERGIC COUGH [None]
  - ALOPECIA [None]
  - RESPIRATORY DISORDER [None]
